FAERS Safety Report 4759285-4 (Version None)
Quarter: 2005Q3

REPORT INFORMATION
  Report Type: 
  Country: None (occurrence: None)
  Receive Date: 20050826
  Receipt Date: 20050608
  Transmission Date: 20060218
  Serious: No
  Sender: FDA-Public Use
  Company Number: WAES 0506USA01362

PATIENT
  Age: 57 Year
  Sex: Female

DRUGS (12)
  1. ZETIA [Suspect]
     Indication: BLOOD CHOLESTEROL INCREASED
     Dosage: 10 MG/DAILY/PO
     Route: 048
     Dates: start: 20050525
  2. ADDERALL TABLETS [Concomitant]
  3. BENTYL [Concomitant]
  4. BUMEX [Concomitant]
  5. CORGARD [Concomitant]
  6. GEODON [Concomitant]
  7. INDOCIN [Concomitant]
  8. MICARDIS [Concomitant]
  9. NORVASC [Concomitant]
  10. PERCOCET [Concomitant]
  11. SLAMA [Concomitant]
  12. POTASSIUM (UNSPECIFIED) [Concomitant]

REACTIONS (1)
  - PAIN IN EXTREMITY [None]
